FAERS Safety Report 7327353-9 (Version None)
Quarter: 2011Q1

REPORT INFORMATION
  Report Type: 
  Country: None (occurrence: None)
  Receive Date: 20110302
  Receipt Date: 20110112
  Transmission Date: 20110831
  Serious: Yes (Other)
  Sender: FDA-Public Use
  Company Number: US-BAYER-2011-004026

PATIENT
  Sex: Male
  Weight: 83.6 kg

DRUGS (11)
  1. BENICAR [Concomitant]
     Indication: HYPERTENSION
     Dosage: DAILY DOSE 4025 MG
     Route: 048
     Dates: start: 20030101
  2. ICAPS [Concomitant]
     Indication: VITAMIN SUPPLEMENTATION
     Dosage: 1 TAB
     Route: 048
     Dates: start: 20100215
  3. ACETAMINOPHEN [Concomitant]
     Indication: HEADACHE
     Dosage: UNK
     Route: 048
     Dates: start: 20100210
  4. PLACEBO (12917) [Suspect]
     Indication: HEPATIC NEOPLASM MALIGNANT
     Dosage: 150 MG, UNK
     Route: 048
  5. OTHER NUTRIENTS [Concomitant]
     Indication: WEIGHT DECREASED
     Dosage: UNK
     Route: 048
     Dates: start: 20100317
  6. TOPROL-XL [Concomitant]
     Dosage: DAILY DOSE 25 MG
     Dates: start: 20100328
  7. RANIBIZUMAB [Concomitant]
     Indication: MACULAR DEGENERATION
     Dosage: Q10 WEEKS
  8. SORAFENIB (RAF KINASE INHIBITOR) [Suspect]
     Indication: HEPATIC NEOPLASM MALIGNANT
     Dosage: 400 MG, BID
     Route: 048
  9. ZOMETA [Concomitant]
     Indication: METASTASES TO BONE
     Dosage: 25 MG, UNK
     Route: 048
     Dates: start: 20100317, end: 20100512
  10. TOPROL-XL [Concomitant]
     Indication: HYPERTENSION
     Dosage: DAILY DOSE 50 MG
     Route: 048
     Dates: start: 20030101, end: 20100327
  11. NAPROXEN SODIUM W/PSEUDOEPHEDRINE HCL [Concomitant]
     Indication: ARTHRALGIA
     Dosage: 1-2 TABS
     Route: 048
     Dates: start: 20100222

REACTIONS (8)
  - URINARY TRACT INFECTION [None]
  - BLOOD BILIRUBIN INCREASED [None]
  - ORTHOSTATIC HYPOTENSION [None]
  - BLOOD GLUCOSE INCREASED [None]
  - WHITE BLOOD CELLS URINE POSITIVE [None]
  - BACTERIAL TEST POSITIVE [None]
  - SYNCOPE [None]
  - AORTIC ANEURYSM [None]
